FAERS Safety Report 18303703 (Version 3)
Quarter: 2020Q4

REPORT INFORMATION
  Report Type: Report from Study
  Country: None (occurrence: ES)
  Receive Date: 20200924
  Receipt Date: 20201005
  Transmission Date: 20210113
  Serious: Yes (Other)
  Sender: FDA-Public Use
  Company Number: ES-ABBVIE-20K-144-3576298-00

PATIENT
  Sex: Female
  Weight: 50 kg

DRUGS (2)
  1. DUODOPA [Suspect]
     Active Substance: CARBIDOPA\LEVODOPA
     Dosage: DOSE 4.1ML/H
     Route: 050
  2. DUODOPA [Suspect]
     Active Substance: CARBIDOPA\LEVODOPA
     Indication: PARKINSON^S DISEASE
     Route: 050
     Dates: start: 20170308

REACTIONS (5)
  - Dyskinesia [Unknown]
  - Device issue [Recovered/Resolved]
  - Unevaluable event [Not Recovered/Not Resolved]
  - Hyperkinesia [Recovered/Resolved]
  - Urine viscosity abnormal [Not Recovered/Not Resolved]

NARRATIVE: CASE EVENT DATE: 2020
